FAERS Safety Report 20098122 (Version 1)
Quarter: 2021Q4

REPORT INFORMATION
  Report Type: Spontaneous
  Country: CA (occurrence: CA)
  Receive Date: 20211122
  Receipt Date: 20211122
  Transmission Date: 20220303
  Serious: Yes (Hospitalization)
  Sender: FDA-Public Use
  Company Number: CA-TEVA-2021-CA-1978936

PATIENT
  Age: 82 Year
  Sex: Female

DRUGS (15)
  1. CLOPIDOGREL [Suspect]
     Active Substance: CLOPIDOGREL BISULFATE
     Indication: Myocardial infarction
     Dosage: 75 MILLIGRAM DAILY;
     Route: 048
  2. ASPIRIN [Suspect]
     Active Substance: ASPIRIN
     Indication: Myocardial infarction
     Dosage: 81 MILLIGRAM DAILY;
     Route: 048
  3. AMITRIPTYLINE [Concomitant]
     Active Substance: AMITRIPTYLINE
  4. ATORVASTATIN [Concomitant]
     Active Substance: ATORVASTATIN
  5. CARBAMAZEPINE [Concomitant]
     Active Substance: CARBAMAZEPINE
  6. FUROSEMIDE [Concomitant]
     Active Substance: FUROSEMIDE
  7. HYDRALAZINE [Concomitant]
     Active Substance: HYDRALAZINE HYDROCHLORIDE
  8. ISOSORBIDE DINITRATE [Concomitant]
     Active Substance: ISOSORBIDE DINITRATE
  9. LEVOTHYROXINE [Concomitant]
     Active Substance: LEVOTHYROXINE
  10. METOPROLOL [Concomitant]
     Active Substance: METOPROLOL
  11. NITROGLYCERIN [Concomitant]
     Active Substance: NITROGLYCERIN
  12. ALBUTEROL [Concomitant]
     Active Substance: ALBUTEROL
  13. SENNOSIDES [Concomitant]
     Active Substance: SENNOSIDES
  14. TYLENOL WITH CODEINE [Concomitant]
     Active Substance: ACETAMINOPHEN\CODEINE PHOSPHATE
  15. VITAMIN B12 [Concomitant]
     Active Substance: CYANOCOBALAMIN

REACTIONS (3)
  - Abdominal pain [Recovering/Resolving]
  - Haematochezia [Recovering/Resolving]
  - Vomiting [Recovering/Resolving]
